FAERS Safety Report 21629681 (Version 1)
Quarter: 2022Q4

REPORT INFORMATION
  Report Type: Spontaneous
  Country: US (occurrence: US)
  Receive Date: 20221122
  Receipt Date: 20221122
  Transmission Date: 20230113
  Serious: No
  Sender: FDA-Public Use
  Company Number: US-ORGANON-O2210USA002471

PATIENT
  Age: 54 Year
  Sex: Male

DRUGS (2)
  1. PREGNYL [Suspect]
     Active Substance: CHORIOGONADOTROPIN ALFA
     Dosage: 500 UNITS EVERY 3 DAYS
     Route: 058
     Dates: start: 202210
  2. STERILE WATER [Suspect]
     Active Substance: WATER
     Dosage: UNK, Q3D
     Route: 058
     Dates: start: 202210

REACTIONS (4)
  - Product storage error [Unknown]
  - Poor quality product administered [Unknown]
  - Incorrect route of product administration [Unknown]
  - No adverse event [Unknown]

NARRATIVE: CASE EVENT DATE: 20221001
